FAERS Safety Report 25941974 (Version 1)
Quarter: 2025Q4

REPORT INFORMATION
  Report Type: Spontaneous
  Country: US (occurrence: None)
  Receive Date: 20251020
  Receipt Date: 20251020
  Transmission Date: 20260118
  Serious: No
  Sender: FDA-CTU
  Company Number: None

PATIENT
  Age: 77 Year
  Sex: Male
  Weight: 67.5 kg

DRUGS (7)
  1. CLINDAMYCIN [Suspect]
     Active Substance: CLINDAMYCIN
     Indication: Skin infection
     Dosage: OTHER QUANTITY : 1 CAPSULE(S);?
     Route: 048
  2. CLINDAMYCIN [Suspect]
     Active Substance: CLINDAMYCIN
     Indication: Prophylaxis
  3. LISINOPRIL [Concomitant]
     Active Substance: LISINOPRIL
  4. LEVOTHYROXINE [Concomitant]
     Active Substance: LEVOTHYROXINE
  5. MAGNESIUM [Concomitant]
     Active Substance: MAGNESIUM
  6. ZINC [Concomitant]
     Active Substance: ZINC
  7. POTASSIUM [Concomitant]
     Active Substance: POTASSIUM

REACTIONS (11)
  - Pain [None]
  - Pain [None]
  - Photopsia [None]
  - Muscle spasms [None]
  - Sleep deficit [None]
  - Decreased appetite [None]
  - Hypophagia [None]
  - Asthenia [None]
  - Pruritus [None]
  - Weight decreased [None]
  - Fatigue [None]

NARRATIVE: CASE EVENT DATE: 20251013
